FAERS Safety Report 8347912-4 (Version None)
Quarter: 2012Q2

REPORT INFORMATION
  Report Type: 
  Country: None (occurrence: None)
  Receive Date: 20120509
  Receipt Date: 20120424
  Transmission Date: 20120825
  Serious: Yes (Hospitalization, Congenital Anomaly, Other)
  Sender: FDA-Public Use
  Company Number: CH-WATSON-2012-07441

PATIENT
  Age: 37 Week
  Sex: Male
  Weight: 2.25 kg

DRUGS (1)
  1. LOSARTAN POTASSIUM [Suspect]
     Indication: FOETAL EXPOSURE DURING PREGNANCY
     Dosage: UNK MG, DAILY
     Route: 064

REACTIONS (5)
  - FOETAL GROWTH RESTRICTION [None]
  - CONGENITAL RENAL DISORDER [None]
  - OLIGOHYDRAMNIOS [None]
  - ANGIOTENSIN CONVERTING ENZYME INHIBITOR FOETOPATHY [None]
  - SELF-MEDICATION [None]
